FAERS Safety Report 20833011 (Version 2)
Quarter: 2022Q2

REPORT INFORMATION
  Report Type: Spontaneous
  Country: US (occurrence: US)
  Receive Date: 20220516
  Receipt Date: 20220524
  Transmission Date: 20220720
  Serious: Yes (Disabling)
  Sender: FDA-Public Use
  Company Number: US-GLAXOSMITHKLINE-US2022AMR075623

PATIENT

DRUGS (2)
  1. SOTROVIMAB [Suspect]
     Active Substance: SOTROVIMAB
     Indication: COVID-19
     Dosage: UNK
     Dates: start: 2022
  2. BALSALAZIDE DISODIUM [Concomitant]
     Active Substance: BALSALAZIDE DISODIUM
     Indication: Product used for unknown indication
     Dosage: 750 MG
     Dates: start: 20181210

REACTIONS (3)
  - Chest discomfort [Unknown]
  - Dyspnoea [Unknown]
  - Drug ineffective [Unknown]

NARRATIVE: CASE EVENT DATE: 20220101
